FAERS Safety Report 14014637 (Version 1)
Quarter: 2017Q3

REPORT INFORMATION
  Report Type: Other
  Country: CN (occurrence: CN)
  Receive Date: 20170927
  Receipt Date: 20170927
  Transmission Date: 20171128
  Serious: Yes (Other)
  Sender: FDA-Public Use
  Company Number: CN-TAKEDA-2017MPI008274

PATIENT
  Sex: Female
  Weight: 58 kg

DRUGS (1)
  1. VELCADE [Suspect]
     Active Substance: BORTEZOMIB
     Indication: PLASMA CELL MYELOMA
     Dosage: 3.5 MG, QD
     Route: 042
     Dates: start: 2017, end: 20170217

REACTIONS (2)
  - Diarrhoea [Recovering/Resolving]
  - Bone marrow failure [Unknown]
